FAERS Safety Report 12979795 (Version 2)
Quarter: 2016Q4

REPORT INFORMATION
  Report Type: Report from Study
  Country: BE (occurrence: BE)
  Receive Date: 20161128
  Receipt Date: 20161213
  Transmission Date: 20170207
  Serious: Yes (Hospitalization)
  Sender: FDA-Public Use
  Company Number: BE-BAYER-2016-020206

PATIENT
  Sex: Male

DRUGS (5)
  1. INDAPAMIDE. [Concomitant]
     Active Substance: INDAPAMIDE
  2. BIFITERAL [Concomitant]
     Active Substance: LACTULOSE
  3. NEXAVAR [Suspect]
     Active Substance: SORAFENIB
     Indication: HEPATOCELLULAR CARCINOMA
     Dosage: 400 MG, QD
     Route: 048
     Dates: start: 20160129, end: 20161015
  4. PANTOPRAZOLE [Concomitant]
     Active Substance: PANTOPRAZOLE SODIUM
     Dosage: 40 MG, UNK
  5. NEXAVAR [Suspect]
     Active Substance: SORAFENIB
     Indication: METASTASES TO LUNG

REACTIONS (49)
  - Abnormal faeces [None]
  - Dyspnoea exertional [Not Recovered/Not Resolved]
  - Pain in extremity [None]
  - Hypertension [None]
  - Hypertension [None]
  - Diarrhoea [None]
  - Weight decreased [Unknown]
  - Weight increased [None]
  - Infection [None]
  - Limb injury [Not Recovered/Not Resolved]
  - Hypotrichosis [None]
  - Peripheral swelling [Not Recovered/Not Resolved]
  - Peripheral swelling [None]
  - Limb discomfort [Unknown]
  - Hypertension [None]
  - Muscle spasms [None]
  - Diarrhoea [Not Recovered/Not Resolved]
  - Fatigue [None]
  - Hypertension [None]
  - Nail growth abnormal [None]
  - Limb discomfort [None]
  - Gout [None]
  - Palmar-plantar erythrodysaesthesia syndrome [Unknown]
  - Oedema peripheral [Unknown]
  - Hypertension [None]
  - Myalgia [None]
  - Hypertension [None]
  - Skin papilloma [Not Recovered/Not Resolved]
  - Hypertension [None]
  - Palmar-plantar erythrodysaesthesia syndrome [Not Recovered/Not Resolved]
  - Hypertension [None]
  - Actinic keratosis [None]
  - Diarrhoea [None]
  - Limb injury [None]
  - Oedema peripheral [Unknown]
  - Erythema [None]
  - Decreased appetite [None]
  - Myalgia [Not Recovered/Not Resolved]
  - Hypertension [None]
  - Diarrhoea [None]
  - Limb injury [None]
  - Increased appetite [Unknown]
  - Hypertension [None]
  - Pain in extremity [None]
  - Onycholysis [None]
  - Dermatitis [None]
  - Erythema [Not Recovered/Not Resolved]
  - Hypertension [None]
  - Vomiting [None]

NARRATIVE: CASE EVENT DATE: 2016
